FAERS Safety Report 8100742-0 (Version None)
Quarter: 2012Q1

REPORT INFORMATION
  Report Type: 
  Country: None (occurrence: None)
  Receive Date: 20120129
  Receipt Date: 20111107
  Transmission Date: 20120608
  Serious: No
  Sender: FDA-Public Use
  Company Number: US-ABBOTT-11P-163-0872102-00

PATIENT
  Sex: Male
  Weight: 93.07 kg

DRUGS (6)
  1. HUMIRA [Suspect]
     Indication: COLITIS ULCERATIVE
     Dates: start: 20110101
  2. LIALDA [Concomitant]
     Indication: COLITIS ULCERATIVE
  3. CELEBREX [Concomitant]
     Indication: PSORIATIC ARTHROPATHY
  4. HUMIRA [Suspect]
     Indication: PSORIATIC ARTHROPATHY
     Dates: start: 20100101
  5. CRESTOR [Concomitant]
     Indication: BLOOD CHOLESTEROL INCREASED
  6. ZETIA [Concomitant]
     Indication: BLOOD CHOLESTEROL INCREASED

REACTIONS (3)
  - ARTHRITIS [None]
  - COLITIS [None]
  - OFF LABEL USE [None]
